FAERS Safety Report 6592777-4 (Version None)
Quarter: 2010Q1

REPORT INFORMATION
  Report Type: 
  Country: None (occurrence: None)
  Receive Date: 20100212
  Receipt Date: 20100202
  Transmission Date: 20100710
  Serious: Yes (Death)
  Sender: FDA-Public Use
  Company Number: 2010SP000363

PATIENT
  Age: 39 Year
  Sex: Male

DRUGS (5)
  1. LUNESTA [Suspect]
     Dosage: ORAL
     Route: 048
     Dates: end: 20080101
  2. ACETAMINOPHEN AND HYDROCODONE BITARTRATE [Suspect]
     Dosage: ORAL
     Route: 048
     Dates: end: 20080101
  3. PREGABALIN [Suspect]
     Dosage: ORAL
     Route: 048
     Dates: end: 20080101
  4. HYDROXYZINE [Suspect]
     Dosage: ORAL
     Route: 048
     Dates: end: 20080101
  5. PROMETHAZINE [Suspect]
     Dosage: ORAL
     Route: 048

REACTIONS (1)
  - COMPLETED SUICIDE [None]
